FAERS Safety Report 6330037-7 (Version None)
Quarter: 2009Q3

REPORT INFORMATION
  Report Type: 
  Country: None (occurrence: None)
  Receive Date: 20090825
  Receipt Date: 20090817
  Transmission Date: 20100115
  Serious: Yes (Hospitalization)
  Sender: FDA-Public Use
  Company Number: 2008AL012005

PATIENT
  Age: 61 Year
  Sex: Female
  Weight: 107.5025 kg

DRUGS (46)
  1. DIGOXIN [Suspect]
     Dosage: 0.125MG, DAILY, PO
     Route: 048
     Dates: start: 19970101, end: 20090618
  2. PRAVASTAIN SODIUM [Concomitant]
  3. HYDROCODONE [Concomitant]
  4. GLYBURIDE [Concomitant]
  5. ALLOPURINOL [Concomitant]
  6. CEFDINIR [Concomitant]
  7. HYDROCHLOROTHIAZIDE [Concomitant]
  8. ACTOS [Concomitant]
  9. FACTIVE [Concomitant]
  10. PLAVIX [Concomitant]
  11. CELEBREX [Concomitant]
  12. METHYLPREDNISOLONE [Concomitant]
  13. CELECOXIB [Concomitant]
  14. TOBRAMYCIN [Concomitant]
  15. CLOPIDOGREL [Concomitant]
  16. PIOGLITAZONE [Concomitant]
  17. STARLIX [Concomitant]
  18. SKELAXIN [Concomitant]
  19. MOBIC [Concomitant]
  20. KETOCONAZOLE [Concomitant]
  21. ASCENSIA [Concomitant]
  22. ALLPURINOL [Concomitant]
  23. TRICOR [Concomitant]
  24. GLUCOVANCE [Concomitant]
  25. NEURONTIN [Concomitant]
  26. INDOMETHACIN [Concomitant]
  27. CYCLOBENZAPRINE [Concomitant]
  28. IBUPROFEN [Concomitant]
  29. PENLAC [Concomitant]
  30. CEFADROXIL [Concomitant]
  31. LISINOPRIL [Concomitant]
  32. TEGRETOL [Concomitant]
  33. NEXIUM [Concomitant]
  34. PREVACID [Concomitant]
  35. NOVOLIN R [Concomitant]
  36. PRINIVIL [Concomitant]
  37. AVANDIA [Concomitant]
  38. ERYTHROMYCIN [Concomitant]
  39. LIPITOR [Concomitant]
  40. PROPOXYPHENE HCL CAP [Concomitant]
  41. ZESTRIL [Concomitant]
  42. MECLIZINE [Concomitant]
  43. GLUCOPHAGE [Concomitant]
  44. PEPCID [Concomitant]
  45. ALLEGRA [Concomitant]
  46. ZITHROMAX [Concomitant]

REACTIONS (14)
  - ABDOMINAL PAIN [None]
  - BASAL CELL CARCINOMA [None]
  - DIASTOLIC DYSFUNCTION [None]
  - DYSPNOEA [None]
  - ECONOMIC PROBLEM [None]
  - HEART RATE DECREASED [None]
  - HEART RATE IRREGULAR [None]
  - HYPOTENSION [None]
  - INJURY [None]
  - LEFT VENTRICULAR HYPERTROPHY [None]
  - NODULE [None]
  - SICK SINUS SYNDROME [None]
  - UMBILICAL HERNIA [None]
  - VISUAL FIELD DEFECT [None]
